FAERS Safety Report 17760515 (Version 4)
Quarter: 2020Q2

REPORT INFORMATION
  Report Type: Report from Study
  Country: US (occurrence: US)
  Receive Date: 20200508
  Receipt Date: 20200609
  Transmission Date: 20200714
  Serious: Yes (Death, Other)
  Sender: FDA-Public Use
  Company Number: US-ROCHE-2591735

PATIENT
  Age: 59 Year
  Sex: Male
  Weight: 102.15 kg

DRUGS (16)
  1. PIRFENIDONE. [Suspect]
     Active Substance: PIRFENIDONE
     Indication: PULMONARY FIBROSIS
     Route: 048
     Dates: start: 20190321
  2. VITAMIN B12 [Concomitant]
     Active Substance: CYANOCOBALAMIN
     Route: 048
  3. ASPIRIN [ACETYLSALICYLIC ACID] [Concomitant]
     Active Substance: ASPIRIN
     Indication: CARDIOVASCULAR EVENT PROPHYLAXIS
     Route: 048
  4. SYMBICORT [Concomitant]
     Active Substance: BUDESONIDE\FORMOTEROL FUMARATE DIHYDRATE
     Indication: PULMONARY SARCOIDOSIS
     Dosage: 160-4.5 MICROGRAM
     Route: 055
  5. PIRFENIDONE. [Suspect]
     Active Substance: PIRFENIDONE
     Route: 048
     Dates: start: 20190321, end: 20200427
  6. ALBUTEROL [SALBUTAMOL] [Concomitant]
     Active Substance: ALBUTEROL
     Indication: PULMONARY SARCOIDOSIS
     Route: 050
  7. OMEGA 3 [FISH OIL] [Concomitant]
     Active Substance: FISH OIL
     Route: 048
  8. PREDNISONE. [Concomitant]
     Active Substance: PREDNISONE
     Indication: SARCOIDOSIS
     Route: 048
  9. BACTRIM [Concomitant]
     Active Substance: SULFAMETHOXAZOLE\TRIMETHOPRIM
     Dosage: DOUBLE STRENGTH (800-160 MG); 1 TAB 3 TIMES A WEEK ;ONGOING: NO
     Route: 048
  10. DIOVAN [Concomitant]
     Active Substance: VALSARTAN
     Route: 048
  11. ELIQUIS [Concomitant]
     Active Substance: APIXABAN
     Route: 048
  12. COREG [Concomitant]
     Active Substance: CARVEDILOL
     Route: 048
  13. LASIX [Concomitant]
     Active Substance: FUROSEMIDE
     Indication: OEDEMA PERIPHERAL
     Route: 048
  14. PIRFENIDONE. [Suspect]
     Active Substance: PIRFENIDONE
     Indication: SARCOIDOSIS
     Route: 048
     Dates: start: 20190321
  15. METHOTREXATE. [Concomitant]
     Active Substance: METHOTREXATE
     Indication: PULMONARY HYPERTENSION
     Route: 048
  16. SINGULAIR [Concomitant]
     Active Substance: MONTELUKAST SODIUM
     Indication: SEASONAL ALLERGY
     Route: 048

REACTIONS (5)
  - Sarcoidosis [Fatal]
  - Cardio-respiratory arrest [Fatal]
  - Hypoxia [Unknown]
  - Loss of consciousness [Unknown]
  - Tricuspid valve incompetence [Unknown]

NARRATIVE: CASE EVENT DATE: 201907
